FAERS Safety Report 17799242 (Version 1)
Quarter: 2020Q2

REPORT INFORMATION
  Report Type: Report from Study
  Country: US (occurrence: US)
  Receive Date: 20200518
  Receipt Date: 20200518
  Transmission Date: 20200714
  Serious: Yes (Other)
  Sender: FDA-Public Use
  Company Number: US-UCBSA-2020019747

PATIENT
  Sex: Male
  Weight: 26.5 kg

DRUGS (16)
  1. DOCUSATE [Concomitant]
     Active Substance: DOCUSATE
     Indication: CONSTIPATION
     Dosage: 50 MILLIGRAM, 2X/DAY (BID)
     Dates: start: 20140412, end: 20140412
  2. LACOSAMIDE. [Suspect]
     Active Substance: LACOSAMIDE
     Indication: STATUS EPILEPTICUS
     Dosage: 25 MILLIGRAM, ONE TIME DOSE
     Route: 042
     Dates: start: 20140413, end: 20140413
  3. LACOSAMIDE. [Suspect]
     Active Substance: LACOSAMIDE
     Indication: OFF LABEL USE
  4. KEPPRA [Suspect]
     Active Substance: LEVETIRACETAM
     Indication: SEIZURE
     Dosage: 900 MILLIGRAM, 2X/DAY (BID)
     Route: 042
     Dates: start: 20140406, end: 20140428
  5. CLOBAZAM. [Concomitant]
     Active Substance: CLOBAZAM
     Indication: SEIZURE
     Dosage: 10 MILLIGRAM, 2X/DAY (BID)
     Dates: start: 20140412, end: 20140511
  6. PANTOPRAZOLE [Concomitant]
     Active Substance: PANTOPRAZOLE
     Indication: GASTRIC DISORDER
     Dosage: 24 MILLIGRAM, ONCE DAILY (QD)
     Route: 042
     Dates: start: 20140406, end: 20140411
  7. PHENOBARBITAL. [Concomitant]
     Active Substance: PHENOBARBITAL
     Indication: SEIZURE
     Dosage: 60 MILLIGRAM, 2X/DAY (BID)
     Route: 042
     Dates: start: 20140407, end: 20140427
  8. SENNA [SENNA ALEXANDRINA] [Concomitant]
     Active Substance: SENNA LEAF
     Indication: CONSTIPATION
     Dosage: 5 MILLILITER, 2X/DAY (BID)
     Dates: start: 20140412, end: 20140412
  9. PROHANCE [Concomitant]
     Active Substance: GADOTERIDOL
     Indication: MAGNETIC RESONANCE IMAGING
     Dosage: 2.4 MILLILITER, ONE TIME DOSE
     Route: 042
     Dates: start: 20140411, end: 20140411
  10. KETAMINE [Concomitant]
     Active Substance: KETAMINE
     Indication: SEDATION
     Dosage: 50 MILLIGRAM, ONE TIME DOSE
     Route: 042
     Dates: start: 20140411, end: 20140411
  11. TOPIRAMATE. [Concomitant]
     Active Substance: TOPIRAMATE
     Indication: SEIZURE
     Dosage: 180 MILLIGRAM, 2X/DAY (BID)
     Dates: start: 20140408, end: 20140522
  12. POLYETHYLENE GLYCOL [Concomitant]
     Active Substance: POLYETHYLENE GLYCOLS
     Indication: CONSTIPATION
     Dosage: 12 GRAM, 2X/DAY (BID)
     Dates: start: 20140412, end: 20140413
  13. ACETAMINOPHEN. [Concomitant]
     Active Substance: ACETAMINOPHEN
     Indication: PYREXIA
     Dosage: 300 MILLIGRAM, 6X/DAY
     Route: 042
     Dates: start: 20140411, end: 20140414
  14. MIDAZOLAM. [Concomitant]
     Active Substance: MIDAZOLAM
     Indication: SEIZURE
     Dosage: 300MCG/KG/HRCONTINUOUS INFUSION
     Route: 042
     Dates: start: 20140406, end: 20140421
  15. LEVOCARNITINE. [Concomitant]
     Active Substance: LEVOCARNITINE
     Indication: SUPPLEMENTATION THERAPY
     Dosage: 600 MILLIGRAM, 2X/DAY (BID)
     Dates: start: 20140410, end: 20140413
  16. OMEPRAZOLE. [Concomitant]
     Active Substance: OMEPRAZOLE
     Indication: OESOPHAGITIS
     Dosage: 20 MILLIGRAM, 2X/DAY (BID)
     Dates: start: 20140412, end: 20140413

REACTIONS (4)
  - Status epilepticus [Unknown]
  - Rash [Recovered/Resolved]
  - Off label use [Unknown]
  - Drug ineffective for unapproved indication [Unknown]

NARRATIVE: CASE EVENT DATE: 20140413
